FAERS Safety Report 9442858 (Version 1)
Quarter: 2013Q3

REPORT INFORMATION
  Report Type: Spontaneous
  Country: US (occurrence: None)
  Receive Date: 20130805
  Receipt Date: 20130805
  Transmission Date: 20140515
  Serious: Yes (Disabling)
  Sender: FDA-Public Use
  Company Number: None

PATIENT
  Age: 62 Year
  Sex: Male
  Weight: 79.38 kg

DRUGS (1)
  1. INDOMETHACIN ER [Suspect]
     Indication: TENDONITIS
     Dosage: 75MG ONCE DAILY PO
     Route: 048
     Dates: start: 20130610, end: 20130706

REACTIONS (2)
  - Tinnitus [None]
  - Gastric disorder [None]
